FAERS Safety Report 11148812 (Version 3)
Quarter: 2015Q4

REPORT INFORMATION
  Report Type: Spontaneous
  Country: IN (occurrence: IN)
  Receive Date: 20150529
  Receipt Date: 20151028
  Transmission Date: 20160304
  Serious: Yes (Death, Life-Threatening, Hospitalization)
  Sender: FDA-Public Use
  Company Number: IN-SA-2015SA069530

PATIENT
  Sex: Female

DRUGS (2)
  1. DOCETAXEL. [Suspect]
     Active Substance: DOCETAXEL
     Indication: BREAST CANCER
     Dosage: 1-2 CYCLE
     Route: 065
  2. DOCETAXEL. [Suspect]
     Active Substance: DOCETAXEL
     Indication: BREAST CANCER
     Dosage: 1-2 CYCLE
     Route: 065

REACTIONS (9)
  - White blood cell count increased [Unknown]
  - Interstitial lung disease [Unknown]
  - Pyrexia [Unknown]
  - Cough [Unknown]
  - Dyspnoea [Unknown]
  - Cardiac arrest [Fatal]
  - Haemorrhage [Unknown]
  - Oxygen saturation decreased [Unknown]
  - Lung infiltration [Unknown]
